FAERS Safety Report 9317491 (Version 1)
Quarter: 2013Q2

REPORT INFORMATION
  Report Type: Spontaneous
  Country: US (occurrence: US)
  Receive Date: 20130530
  Receipt Date: 20130530
  Transmission Date: 20140414
  Serious: No
  Sender: FDA-Public Use
  Company Number: US-GLAXOSMITHKLINE-A0943024A

PATIENT
  Age: 33 Year
  Sex: Female
  Weight: 78.2 kg

DRUGS (8)
  1. BOOSTRIX [Suspect]
     Indication: PROPHYLAXIS
     Dosage: .5ML SINGLE DOSE
     Route: 030
     Dates: start: 20110720, end: 20110720
  2. TYPHOID VACCINE (NON-GSK) [Suspect]
     Indication: PROPHYLAXIS
     Dosage: .5ML SINGLE DOSE
     Route: 030
     Dates: start: 20110720, end: 20110720
  3. ANTHRAX VACCINE ADSORBED NOS [Suspect]
     Indication: PROPHYLAXIS
     Dosage: .5ML SINGLE DOSE
     Route: 030
     Dates: start: 20110720, end: 20110720
  4. ALBUTEROL [Suspect]
     Indication: PRODUCT USED FOR UNKNOWN INDICATION
     Route: 065
  5. FLOVENT [Suspect]
     Indication: PRODUCT USED FOR UNKNOWN INDICATION
     Route: 065
  6. ZOFRAN [Suspect]
     Indication: HYPEREMESIS GRAVIDARUM
     Route: 065
     Dates: start: 20111216
  7. ZYRTEC [Concomitant]
     Indication: PRODUCT USED FOR UNKNOWN INDICATION
     Dosage: 10MG PER DAY
     Route: 048
     Dates: start: 200704
  8. SINGULAIR [Concomitant]
     Indication: PRODUCT USED FOR UNKNOWN INDICATION
     Dosage: 10MG PER DAY
     Route: 048
     Dates: start: 200712

REACTIONS (6)
  - Live birth [Unknown]
  - Meconium in amniotic fluid [Unknown]
  - Artificial rupture of membranes [Unknown]
  - Crying [Unknown]
  - Exposure during pregnancy [Unknown]
  - Exposure during pregnancy [Unknown]
